FAERS Safety Report 10846754 (Version 1)
Quarter: 2015Q1

REPORT INFORMATION
  Report Type: Spontaneous
  Country: IT (occurrence: GB)
  Receive Date: 20150220
  Receipt Date: 20150220
  Transmission Date: 20150721
  Serious: Yes (Hospitalization)
  Sender: FDA-Public Use
  Company Number: GB-FRI-1000074683

PATIENT
  Sex: Female
  Weight: 57 kg

DRUGS (5)
  1. NEBIVOLOL [Suspect]
     Active Substance: NEBIVOLOL
     Dosage: 2.5 MG
  2. ASPIRIN. [Concomitant]
     Active Substance: ASPIRIN
  3. VITAMIN D3 [Concomitant]
     Active Substance: CHOLECALCIFEROL
  4. NEBIVOLOL [Suspect]
     Active Substance: NEBIVOLOL
     Dosage: 2.5 MG
  5. NEBIVOLOL [Suspect]
     Active Substance: NEBIVOLOL
     Dosage: 7.5 MG

REACTIONS (10)
  - Blood pressure abnormal [Unknown]
  - Arthralgia [Not Recovered/Not Resolved]
  - Feeling hot [Unknown]
  - Fall [Unknown]
  - Headache [Unknown]
  - Drug intolerance [Recovered/Resolved]
  - Gait disturbance [Not Recovered/Not Resolved]
  - Balance disorder [Recovering/Resolving]
  - Overdose [Recovered/Resolved]
  - Tachycardia [Unknown]
